FAERS Safety Report 23999657 (Version 1)
Quarter: 2024Q2

REPORT INFORMATION
  Report Type: Spontaneous
  Country: US (occurrence: US)
  Receive Date: 20240621
  Receipt Date: 20240621
  Transmission Date: 20240716
  Serious: Yes (Hospitalization)
  Sender: FDA-Public Use
  Company Number: US-MYLANLABS-2024M1054961

PATIENT
  Age: 38 Year
  Sex: Male

DRUGS (4)
  1. ESTRADIOL [Suspect]
     Active Substance: ESTRADIOL
     Indication: Transgender hormonal therapy
     Dosage: 10 MILLIGRAM, QD (PILLS)
     Route: 048
  2. ESTRADIOL [Suspect]
     Active Substance: ESTRADIOL
     Dosage: 6 MILLIGRAM, QD (PILLS)
     Route: 048
  3. ESTRADIOL [Suspect]
     Active Substance: ESTRADIOL
     Dosage: 2 MILLIGRAM, QD
     Route: 048
  4. ESTRADIOL [Suspect]
     Active Substance: ESTRADIOL
     Dosage: 1 MILLIGRAM, QD (FINAL REGIMEN)
     Route: 048

REACTIONS (4)
  - Blood oestrogen increased [Recovered/Resolved]
  - Blood testosterone abnormal [Recovered/Resolved]
  - Product administration error [Recovered/Resolved]
  - Product administered at inappropriate site [Recovered/Resolved]
